FAERS Safety Report 8000390-7 (Version None)
Quarter: 2011Q4

REPORT INFORMATION
  Report Type: 
  Country: None (occurrence: None)
  Receive Date: 20111220
  Receipt Date: 20111220
  Transmission Date: 20120403
  Serious: Yes (Hospitalization, Disabling)
  Sender: FDA-Public Use
  Company Number: None

PATIENT
  Sex: Female
  Weight: 63.5036 kg

DRUGS (1)
  1. SYMBICORT [Suspect]
     Indication: DYSPNOEA
     Dosage: 2 PUFFS TWICE DAILY
     Dates: start: 20110525, end: 20110725

REACTIONS (13)
  - NECK PAIN [None]
  - OEDEMA [None]
  - INSOMNIA [None]
  - FALL [None]
  - FOREIGN BODY SENSATION IN EYES [None]
  - HEADACHE [None]
  - MUSCULOSKELETAL PAIN [None]
  - FIBULA FRACTURE [None]
  - FATIGUE [None]
  - MALAISE [None]
  - HYPERHIDROSIS [None]
  - FEELING ABNORMAL [None]
  - VERTIGO [None]
